FAERS Safety Report 7003349-1 (Version None)
Quarter: 2010Q3

REPORT INFORMATION
  Report Type: 
  Country: None (occurrence: None)
  Receive Date: 20100916
  Receipt Date: 20100907
  Transmission Date: 20110219
  Serious: Yes (Hospitalization)
  Sender: FDA-Public Use
  Company Number: IPC201009-000255

PATIENT
  Age: 73 Year
  Sex: Female

DRUGS (3)
  1. METOPROLOL TARTRATE [Suspect]
  2. RAMIPRIL [Suspect]
  3. ASPIRIN [Suspect]

REACTIONS (2)
  - ANGIOEDEMA [None]
  - COMPLEMENT FACTOR C4 INCREASED [None]
